FAERS Safety Report 10064924 (Version 3)
Quarter: 2014Q2

REPORT INFORMATION
  Report Type: Report from Study
  Country: US (occurrence: US)
  Receive Date: 20140408
  Receipt Date: 20140425
  Transmission Date: 20141212
  Serious: Yes (Other)
  Sender: FDA-Public Use
  Company Number: US-BAYER-2014-019535

PATIENT
  Age: 49 Year
  Sex: Female

DRUGS (3)
  1. NEXAVAR [Suspect]
     Indication: RENAL CANCER
     Dosage: 400 MG, BID
     Route: 048
     Dates: start: 201312, end: 20140115
  2. NEXAVAR [Suspect]
     Indication: RENAL CANCER
     Dosage: 200 MG, BID
     Route: 048
     Dates: start: 20140130
  3. NEXAVAR [Suspect]
     Indication: RENAL CANCER
     Dosage: 200 MG, BID
     Route: 048
     Dates: start: 201312, end: 20140414

REACTIONS (8)
  - Rash [None]
  - Asthenia [None]
  - Fatigue [None]
  - Weight decreased [None]
  - Decreased appetite [None]
  - Hypotension [None]
  - Eye movement disorder [None]
  - Blood glucose decreased [None]
